FAERS Safety Report 24363140 (Version 1)
Quarter: 2024Q3

REPORT INFORMATION
  Report Type: Spontaneous
  Country: US (occurrence: US)
  Receive Date: 20240925
  Receipt Date: 20240925
  Transmission Date: 20241016
  Serious: Yes (Other)
  Sender: AMGEN
  Company Number: US-AMGEN-USASP2024190244

PATIENT

DRUGS (2)
  1. BEVACIZUMAB [Suspect]
     Active Substance: BEVACIZUMAB
     Indication: Retinopathy of prematurity
     Dosage: 0.625 MILLIGRAM, 0.025ML/EYE IVB
  2. FLUORESCEIN [Concomitant]
     Active Substance: FLUORESCEIN
     Dosage: 7MG/KG-10MG/KG

REACTIONS (2)
  - Retinopathy of prematurity [Unknown]
  - Off label use [Unknown]
